FAERS Safety Report 5716246-6 (Version None)
Quarter: 2008Q2

REPORT INFORMATION
  Report Type: 
  Country: None (occurrence: None)
  Receive Date: 20080424
  Receipt Date: 20080414
  Transmission Date: 20081010
  Serious: Yes (Death, Life-Threatening)
  Sender: FDA-Public Use
  Company Number: A0722402A

PATIENT
  Age: 68 Year
  Sex: Female

DRUGS (12)
  1. ADVAIR HFA [Suspect]
     Indication: ASTHMA
     Dosage: 1PUFF TWICE PER DAY
     Route: 055
     Dates: start: 20030114, end: 20061005
  2. SEREVENT [Suspect]
     Indication: ASTHMA
     Dosage: 2PUFF TWICE PER DAY
     Route: 055
     Dates: start: 20020827, end: 20030724
  3. PREDNISONE [Concomitant]
  4. ALBUTEROL [Concomitant]
  5. PROTONIX [Concomitant]
  6. GLYBURIDE [Concomitant]
  7. NASACORT [Concomitant]
  8. GLUCOPHAGE [Concomitant]
  9. FLUVASTATIN [Concomitant]
  10. ASPIRIN [Concomitant]
  11. FLONASE [Concomitant]
  12. FLOVENT [Concomitant]

REACTIONS (3)
  - ASTHMA [None]
  - CARDIO-RESPIRATORY ARREST [None]
  - RESPIRATORY ARREST [None]
